FAERS Safety Report 5382888-3 (Version None)
Quarter: 2007Q3

REPORT INFORMATION
  Report Type: 
  Country: None (occurrence: None)
  Receive Date: 20070710
  Receipt Date: 20070703
  Transmission Date: 20080115
  Serious: Yes (Hospitalization, Other)
  Sender: FDA-Public Use
  Company Number: PHBS2007HR09074

PATIENT
  Age: 19 Year
  Sex: Female

DRUGS (1)
  1. TRILEPTAL [Suspect]
     Indication: PARTIAL SEIZURES
     Dosage: 300 MG, BID
     Route: 048
     Dates: start: 20070419, end: 20070515

REACTIONS (6)
  - ALANINE AMINOTRANSFERASE INCREASED [None]
  - ASPARTATE AMINOTRANSFERASE INCREASED [None]
  - DRUG TOXICITY [None]
  - GAMMA-GLUTAMYLTRANSFERASE INCREASED [None]
  - HEPATIC ENZYME INCREASED [None]
  - LIVER DISORDER [None]
